FAERS Safety Report 17541287 (Version 5)
Quarter: 2020Q3

REPORT INFORMATION
  Report Type: Report from Study
  Country: KR (occurrence: KR)
  Receive Date: 20200313
  Receipt Date: 20200717
  Transmission Date: 20201102
  Serious: Yes (Death)
  Sender: FDA-Public Use
  Company Number: KR-CELGENEUS-KOR-20200303105

PATIENT
  Age: 77 Year
  Sex: Female
  Weight: 46.3 kg

DRUGS (9)
  1. SEPTRIN [Concomitant]
     Active Substance: SULFAMETHOXAZOLE\TRIMETHOPRIM
     Indication: INFECTION
     Dosage: 400/80MG
     Route: 048
     Dates: start: 20190812
  2. SMOFLIPID [Concomitant]
     Active Substance: FISH OIL\MEDIUM-CHAIN TRIGLYCERIDES\OLIVE OIL\SOYBEAN OIL
     Indication: DECREASED APPETITE
     Dosage: 250 MILLILITER
     Route: 065
     Dates: start: 20200225, end: 20200225
  3. ASPIRIN PROTECT [Concomitant]
     Active Substance: ASPIRIN
     Indication: CARDIAC FAILURE
     Dosage: 100 MILLIGRAM
     Route: 048
     Dates: start: 20190812
  4. K?CONTIN [Concomitant]
     Indication: HYPOKALAEMIA
     Dosage: 1200 MILLIGRAM
     Route: 048
     Dates: start: 20200225
  5. CRAVIT [Concomitant]
     Active Substance: LEVOFLOXACIN
     Indication: INFECTION
     Dosage: 500 MILLIGRAM
     Route: 048
     Dates: start: 20190812
  6. DEXAMETHASONE. [Suspect]
     Active Substance: DEXAMETHASONE
     Indication: PLASMA CELL MYELOMA
     Dosage: 2.8571 MILLIGRAM
     Route: 065
     Dates: start: 20190812, end: 20200304
  7. TAMIPOOL [Concomitant]
     Active Substance: VITAMINS
     Indication: ASTHENIA
     Dosage: 5 MILLILITER
     Route: 065
     Dates: start: 20200225, end: 20200225
  8. POMALIDOMIDE [Suspect]
     Active Substance: POMALIDOMIDE
     Indication: PLASMA CELL MYELOMA
     Dosage: 21 DAYS/28 DAYS
     Route: 048
     Dates: start: 20190812, end: 20200304
  9. ACLOVA [Concomitant]
     Indication: INFECTION
     Dosage: 400 MILLIGRAM
     Route: 048
     Dates: start: 20190812

REACTIONS (2)
  - Cerebral infarction [Fatal]
  - Pneumonia [Fatal]

NARRATIVE: CASE EVENT DATE: 20200308
